FAERS Safety Report 16279985 (Version 1)
Quarter: 2019Q2

REPORT INFORMATION
  Report Type: Spontaneous
  Country: AU (occurrence: AU)
  Receive Date: 20190507
  Receipt Date: 20190507
  Transmission Date: 20190711
  Serious: Yes (Hospitalization, Other)
  Sender: FDA-Public Use
  Company Number: AU-ABBVIE-19S-008-2766492-00

PATIENT
  Age: 72 Year
  Sex: Male

DRUGS (1)
  1. DUODOPA [Suspect]
     Active Substance: CARBIDOPA\LEVODOPA
     Indication: PRODUCT USED FOR UNKNOWN INDICATION
     Dosage: BD OF 9 ML IN THE MORNING; CI OF 5.8ML PER HOUR FROM 6 AM TO 9 PM; BD OF 0.5 ML AT MIDDAY
     Route: 050

REACTIONS (4)
  - Confusional state [Unknown]
  - Fall [Unknown]
  - Fall [Unknown]
  - Delirium [Unknown]

NARRATIVE: CASE EVENT DATE: 20190425
